FAERS Safety Report 20739025 (Version 7)
Quarter: 2023Q1

REPORT INFORMATION
  Report Type: Report from Study
  Country: MX (occurrence: MX)
  Receive Date: 20220422
  Receipt Date: 20230110
  Transmission Date: 20230417
  Serious: Yes (Death, Hospitalization)
  Sender: FDA-Public Use
  Company Number: MX-NOVARTISPH-NVSC2020MX277588

PATIENT
  Age: 60 Year
  Sex: Male
  Weight: 49.5 kg

DRUGS (3)
  1. TASIGNA [Suspect]
     Active Substance: NILOTINIB
     Indication: Chronic myeloid leukaemia
     Dosage: 400 MG, BID
     Route: 048
     Dates: start: 20191213
  2. TASIGNA [Suspect]
     Active Substance: NILOTINIB
     Dosage: UNK
     Route: 048
  3. DASATINIB [Concomitant]
     Active Substance: DASATINIB
     Indication: Product used for unknown indication
     Dosage: UNK
     Route: 065

REACTIONS (24)
  - Death [Fatal]
  - Eating disorder [Unknown]
  - Chronic obstructive pulmonary disease [Unknown]
  - Weight decreased [Unknown]
  - Inflammation [Unknown]
  - Pleural effusion [Unknown]
  - Cough [Not Recovered/Not Resolved]
  - Dyspnoea [Unknown]
  - Pneumonia [Unknown]
  - Fatigue [Unknown]
  - Asthenia [Unknown]
  - Dyspepsia [Unknown]
  - Gastritis [Not Recovered/Not Resolved]
  - Atelectasis [Unknown]
  - Abdominal distension [Unknown]
  - Pruritus [Unknown]
  - Influenza [Unknown]
  - Blood glucose increased [Unknown]
  - Movement disorder [Recovering/Resolving]
  - Respiratory disorder [Recovering/Resolving]
  - Hunger [Unknown]
  - Dysstasia [Unknown]
  - Constipation [Unknown]
  - Diarrhoea [Unknown]

NARRATIVE: CASE EVENT DATE: 20210101
